FAERS Safety Report 9851407 (Version 3)
Quarter: 2014Q1

REPORT INFORMATION
  Report Type: Spontaneous
  Country: US (occurrence: US)
  Receive Date: 20140129
  Receipt Date: 20140305
  Transmission Date: 20141002
  Serious: No
  Sender: FDA-Public Use
  Company Number: US-B.I. PHARMACEUTICALS,INC./RIDGEFIELD-2014-BI-02429BP

PATIENT
  Age: 85 Year
  Sex: Female
  Weight: 84 kg

DRUGS (3)
  1. SPIRIVA [Suspect]
     Indication: DYSPNOEA
     Dosage: 18 MCG
     Route: 055
     Dates: start: 2010
  2. MULTIPLE VITAMIN [Concomitant]
     Indication: VITAMIN SUPPLEMENTATION
     Dosage: 1 ANZ
     Route: 048
  3. TEKTURNA [Concomitant]
     Indication: HYPERTENSION
     Dosage: 150 MG
     Route: 048

REACTIONS (3)
  - Dyspnoea [Unknown]
  - Product quality issue [Unknown]
  - Product quality issue [Unknown]
